FAERS Safety Report 6960445-2 (Version None)
Quarter: 2010Q3

REPORT INFORMATION
  Report Type: 
  Country: None (occurrence: None)
  Receive Date: 20100823
  Receipt Date: 20100712
  Transmission Date: 20110219
  Serious: No
  Sender: FDA-Public Use
  Company Number: 015459

PATIENT
  Sex: Female
  Weight: 81.6 kg

DRUGS (5)
  1. CIMZIA [Suspect]
     Indication: CROHN'S DISEASE
     Dosage: 400 MG 1X/MONTH SUBCUTANEOUS
     Route: 058
     Dates: start: 20091201, end: 20100401
  2. LIPITOR [Concomitant]
  3. ZOLOFT [Concomitant]
  4. FISH OIL [Concomitant]
  5. CAPADEX [Concomitant]

REACTIONS (1)
  - INJECTION SITE PAIN [None]
